FAERS Safety Report 22201015 (Version 1)
Quarter: 2023Q2

REPORT INFORMATION
  Report Type: Spontaneous
  Country: US (occurrence: None)
  Receive Date: 20230412
  Receipt Date: 20230412
  Transmission Date: 20230722
  Serious: No
  Sender: FDA-Public Use
  Company Number: 2023A067229

PATIENT
  Sex: Female
  Weight: 97.5 kg

DRUGS (1)
  1. PULMICORT FLEXHALER [Suspect]
     Active Substance: BUDESONIDE
     Indication: Illness
     Route: 055
     Dates: start: 20230310

REACTIONS (10)
  - Device delivery system issue [Not Recovered/Not Resolved]
  - Illness [Unknown]
  - Product dose omission issue [Unknown]
  - Cough [Unknown]
  - Intentional device misuse [Unknown]
  - Wrong technique in device usage process [Unknown]
  - Taste disorder [Unknown]
  - Product use issue [Unknown]
  - Hypersensitivity [Unknown]
  - Pulmonary congestion [Unknown]
